FAERS Safety Report 9506129 (Version 1)
Quarter: 2013Q1

REPORT INFORMATION
  Report Type: Spontaneous
  Country: US (occurrence: None)
  Receive Date: 20130305
  Receipt Date: 20130305
  Transmission Date: 20140127
  Serious: No
  Sender: FDA-Public Use
  Company Number: 1000040430

PATIENT
  Age: 85 Year
  Sex: Male

DRUGS (6)
  1. DALIRESP (ROFLUMILAST) (500 MICROGRAM, TABLETS) [Suspect]
     Indication: CHRONIC OBSTRUCTIVE PULMONARY DISEASE
     Dates: start: 201211, end: 201211
  2. DALIRESP (ROFLUMILAST) (500 MICROGRAM, TABLETS) [Suspect]
     Indication: EMPHYSEMA
     Dates: start: 201211, end: 201211
  3. LIPITOR (ATORVASTATIN CALCIUM) (ATORVASTATIN CALCIUM) [Concomitant]
  4. SPIRIVA (TIOTROPIUM BROMIDE) (TIOTROPIUM BROMIDE) [Concomitant]
  5. ZETIA (EZETIMIBE) (EZETIMIBE) [Concomitant]
  6. LASIX (FUROSEMIDE) (FUROSEMIDE) [Concomitant]

REACTIONS (2)
  - Mood altered [None]
  - Irritability [None]
